FAERS Safety Report 18951779 (Version 5)
Quarter: 2023Q2

REPORT INFORMATION
  Report Type: Other
  Country: CA (occurrence: CA)
  Receive Date: 20210301
  Receipt Date: 20230518
  Transmission Date: 20230722
  Serious: Yes (Hospitalization, Other)
  Sender: FDA-Public Use
  Company Number: CA-CELLTRION INC.-2021CA002435

PATIENT

DRUGS (10)
  1. RITUXIMAB [Suspect]
     Active Substance: RITUXIMAB
     Indication: Systemic lupus erythematosus
     Dosage: 1000.0 MILLIGRAM, 1 EVERY 15 DAYS
     Route: 041
  2. BENADRYL [Concomitant]
     Active Substance: DIPHENHYDRAMINE HYDROCHLORIDE
     Indication: Premedication
     Dosage: 50.0 MILLIGRAM
     Route: 048
  3. BENLYSTA [Concomitant]
     Active Substance: BELIMUMAB
     Dosage: 1 EVERY 1 WEEKS
     Route: 058
  4. CLONIDINE [Concomitant]
     Active Substance: CLONIDINE
     Indication: Product used for unknown indication
  5. FENTANYL [Concomitant]
     Active Substance: FENTANYL
     Indication: Product used for unknown indication
  6. HYDROXYZINE [Concomitant]
     Active Substance: HYDROXYZINE HYDROCHLORIDE
     Indication: Product used for unknown indication
  7. NABILONE [Concomitant]
     Active Substance: NABILONE
     Indication: Product used for unknown indication
  8. PRUCALOPRIDE SUCCINATE [Concomitant]
     Active Substance: PRUCALOPRIDE SUCCINATE
     Indication: Product used for unknown indication
  9. TRAMADOL [Concomitant]
     Active Substance: TRAMADOL
     Indication: Product used for unknown indication
  10. TYLENOL [Concomitant]
     Active Substance: ACETAMINOPHEN
     Indication: Premedication
     Dosage: 650.0 MILLIGRAM
     Route: 048

REACTIONS (12)
  - Nephrolithiasis [Not Recovered/Not Resolved]
  - Stoma site pain [Not Recovered/Not Resolved]
  - Volvulus [Not Recovered/Not Resolved]
  - Tooth disorder [Not Recovered/Not Resolved]
  - Abdominal pain upper [Not Recovered/Not Resolved]
  - Tooth infection [Not Recovered/Not Resolved]
  - Vascular device infection [Not Recovered/Not Resolved]
  - Urinary tract infection [Not Recovered/Not Resolved]
  - Chest pain [Not Recovered/Not Resolved]
  - Hypotension [Not Recovered/Not Resolved]
  - Haematological infection [Not Recovered/Not Resolved]
  - Intentional product use issue [Unknown]
